FAERS Safety Report 7758835-3 (Version None)
Quarter: 2011Q3

REPORT INFORMATION
  Report Type: 
  Country: None (occurrence: None)
  Receive Date: 20110919
  Receipt Date: 20110915
  Transmission Date: 20111222
  Serious: No
  Sender: FDA-Public Use
  Company Number: US-BAYER-2011-087019

PATIENT
  Age: 56 Year
  Sex: Female
  Weight: 59.864 kg

DRUGS (9)
  1. ZETIA [Concomitant]
  2. RED YEAST RICE [Concomitant]
     Route: 048
  3. OSTEO BI-FLEX [Concomitant]
     Route: 048
  4. CALCITRATE [Concomitant]
     Dosage: 150 MG, UNK
     Route: 048
  5. BETASERON [Suspect]
     Indication: PRODUCT USED FOR UNKNOWN INDICATION
     Dosage: 1 ML, QOD
     Route: 058
  6. LEVOTHYROXINE SODIUM [Concomitant]
     Dosage: 100 UNK, UNK
     Route: 048
  7. COQ10 [Concomitant]
     Dosage: 100 MG, UNK
     Route: 048
  8. ZOLOFT [Concomitant]
     Dosage: 100 MG, UNK
     Route: 048
  9. MULTIVITAMIN PREPARATION + MINERAL SUPPLEMENT [Concomitant]

REACTIONS (1)
  - HEADACHE [None]
